FAERS Safety Report 12970137 (Version 2)
Quarter: 2016Q4

REPORT INFORMATION
  Report Type: Spontaneous
  Country: US (occurrence: US)
  Receive Date: 20161123
  Receipt Date: 20161207
  Transmission Date: 20170207
  Serious: Yes (Other)
  Sender: FDA-Public Use
  Company Number: US-EMD SERONO-8120082

PATIENT
  Age: 22 Year
  Sex: Female

DRUGS (1)
  1. REBIF [Suspect]
     Active Substance: INTERFERON BETA-1A
     Indication: PRODUCT USED FOR UNKNOWN INDICATION

REACTIONS (5)
  - Tonsillar disorder [Unknown]
  - Condition aggravated [Unknown]
  - Gallbladder disorder [Unknown]
  - Uterine disorder [Unknown]
  - Polyp [Unknown]

NARRATIVE: CASE EVENT DATE: 200109
